FAERS Safety Report 16258941 (Version 2)
Quarter: 2019Q3

REPORT INFORMATION
  Report Type: Spontaneous
  Country: US (occurrence: US)
  Receive Date: 20190501
  Receipt Date: 20190726
  Transmission Date: 20191004
  Serious: No
  Sender: FDA-Public Use
  Company Number: US-EMMAUS MEDICAL, INC.-EMM201901-000029

PATIENT
  Age: 28 Year
  Sex: Female

DRUGS (2)
  1. ENDARI [Suspect]
     Active Substance: GLUTAMINE
     Indication: SICKLE CELL DISEASE
     Dosage: 3 PACKETS
     Route: 048
     Dates: start: 20180917
  2. ENDARI [Suspect]
     Active Substance: GLUTAMINE
     Dosage: 2 PACKETS
     Route: 048
     Dates: start: 201810

REACTIONS (2)
  - Headache [Not Recovered/Not Resolved]
  - Therapy change [Unknown]

NARRATIVE: CASE EVENT DATE: 20180918
